FAERS Safety Report 9717461 (Version 1)
Quarter: 2013Q4

REPORT INFORMATION
  Report Type: Spontaneous
  Country: US (occurrence: US)
  Receive Date: 20131127
  Receipt Date: 20131127
  Transmission Date: 20140711
  Serious: No
  Sender: FDA-Public Use
  Company Number: US-GILEAD-2009-0019740

PATIENT
  Sex: Female
  Weight: 95.25 kg

DRUGS (18)
  1. LETAIRIS [Suspect]
     Indication: PULMONARY ARTERIAL HYPERTENSION
     Route: 048
     Dates: start: 20081211
  2. NORVASC [Concomitant]
  3. METOPROLOL [Concomitant]
  4. LISINOPRIL [Concomitant]
  5. ASPIRIN [Concomitant]
  6. LASIX [Concomitant]
  7. FACTIVE [Concomitant]
  8. MAXAIR [Concomitant]
  9. ALBUTEROL [Concomitant]
  10. SYMBICORT [Concomitant]
  11. PREDNISONE [Concomitant]
  12. AVELOX [Concomitant]
  13. THEOPHYLLINE [Concomitant]
  14. FLOMAX [Concomitant]
  15. AMBIEN [Concomitant]
  16. SUCRALFATE [Concomitant]
  17. NEXIUM [Concomitant]
  18. POTASSIUM CHLORIDE [Concomitant]

REACTIONS (2)
  - Oedema peripheral [Unknown]
  - Nasal congestion [Unknown]
